FAERS Safety Report 17665513 (Version 1)
Quarter: 2020Q2

REPORT INFORMATION
  Report Type: Spontaneous
  Country: US (occurrence: US)
  Receive Date: 20200413
  Receipt Date: 20200413
  Transmission Date: 20200713
  Serious: Yes (Hospitalization)
  Sender: FDA-Public Use
  Company Number: None

PATIENT
  Age: 65 Year
  Sex: Female

DRUGS (8)
  1. OMEPRAZOLE. [Concomitant]
     Active Substance: OMEPRAZOLE
  2. ACYCLOVIR. [Concomitant]
     Active Substance: ACYCLOVIR
  3. AMLODIPINE [Concomitant]
     Active Substance: AMLODIPINE BESYLATE
  4. MYCOPHENOLATE 250MG CAP [Suspect]
     Active Substance: MYCOPHENOLATE MOFETIL
     Indication: RENAL TRANSPLANT
     Route: 048
     Dates: start: 20160203
  5. SIMVASTATIN. [Concomitant]
     Active Substance: SIMVASTATIN
  6. CELLCEPT [Concomitant]
     Active Substance: MYCOPHENOLATE MOFETIL\MYCOPHENOLATE MOFETIL HYDROCHLORIDE
  7. PREDNISONE. [Concomitant]
     Active Substance: PREDNISONE
  8. TACROLIMUS. [Concomitant]
     Active Substance: TACROLIMUS

REACTIONS (1)
  - Bacterial infection [None]

NARRATIVE: CASE EVENT DATE: 20200308
